FAERS Safety Report 17080817 (Version 1)
Quarter: 2019Q4

REPORT INFORMATION
  Report Type: Spontaneous
  Country: CH (occurrence: CH)
  Receive Date: 20191127
  Receipt Date: 20191127
  Transmission Date: 20200122
  Serious: Yes (Other)
  Sender: FDA-Public Use
  Company Number: CH-TEVA-580820ISR

PATIENT
  Age: 38 Year
  Sex: Female

DRUGS (1)
  1. FUNGOTOX-200 [Suspect]
     Active Substance: CLOTRIMAZOLE
     Indication: VULVOVAGINAL MYCOTIC INFECTION
     Dosage: 200 MILLIGRAM DAILY; TO BE APPLIED AT A DOSE OF 1 VAGINAL TABLET EACH ON 3 SUCCESSIVE EVENINGS
     Route: 048
     Dates: start: 20150712, end: 20150712

REACTIONS (2)
  - Incorrect route of product administration [Recovered/Resolved]
  - Maternal exposure during pregnancy [Unknown]

NARRATIVE: CASE EVENT DATE: 20150712
